FAERS Safety Report 8449014-5 (Version None)
Quarter: 2012Q2

REPORT INFORMATION
  Report Type: 
  Country: None (occurrence: None)
  Receive Date: 20120619
  Receipt Date: 20120615
  Transmission Date: 20120825
  Serious: Yes (Death, Hospitalization, Other)
  Sender: FDA-Public Use
  Company Number: PHHY2012BR052048

PATIENT
  Sex: Female

DRUGS (6)
  1. AMLODIPINE [Suspect]
     Dosage: 1 DF, (VALS 160 MG, AMLO 12.5 MG) UNK
  2. GALVUS MET COMBIPACK [Suspect]
     Dosage: 1 DF, (METF 850 MG, VILD 50 MG)
     Dates: start: 20120301
  3. ATENOLOL [Concomitant]
  4. METFORMIN HCL [Suspect]
     Dosage: 1 DF, (METF 1000 MG, VILD 50 MG)
  5. EXFORGE HCT [Suspect]
     Indication: HYPERTENSION
     Dosage: 1 DF, (VALS 160 MG, AMLO 5 MG, HYDR 12.5 MG) UNK
  6. ASPIRIN [Concomitant]
     Dosage: 81 MG,

REACTIONS (7)
  - RENAL IMPAIRMENT [None]
  - ORGAN FAILURE [None]
  - CYSTITIS [None]
  - DYSPHAGIA [None]
  - KIDNEY INFECTION [None]
  - HAEMORRHAGE [None]
  - URINARY TRACT INFECTION [None]
